FAERS Safety Report 9506995 (Version 1)
Quarter: 2013Q3

REPORT INFORMATION
  Report Type: Spontaneous
  Country: GB (occurrence: None)
  Receive Date: 20130904
  Receipt Date: 20130904
  Transmission Date: 20140515
  Serious: Yes (Hospitalization, Other)
  Sender: FDA-Public Use
  Company Number: AUR-APL-2013-07195

PATIENT
  Age: 80 Year
  Sex: Female

DRUGS (3)
  1. CEFALEXIN (CEFALEXIN) [Suspect]
     Indication: URINARY TRACT INFECTION
     Dosage: 1000 MG (500 MG,2 IN 1 D)
     Route: 048
     Dates: start: 20130725
  2. BISOPROLOL (BISOPROLOL) [Concomitant]
  3. WARFARIN (WARFARIN) [Concomitant]

REACTIONS (9)
  - Headache [None]
  - Confusional state [None]
  - Agitation [None]
  - Lethargy [None]
  - Dizziness [None]
  - Somnolence [None]
  - Pneumonia [None]
  - Meningitis [None]
  - Encephalitis [None]
